FAERS Safety Report 6795926-8 (Version None)
Quarter: 2010Q2

REPORT INFORMATION
  Report Type: 
  Country: None (occurrence: None)
  Receive Date: 20100625
  Receipt Date: 20100618
  Transmission Date: 20101027
  Serious: Yes (Death)
  Sender: FDA-Public Use
  Company Number: B0657883A

PATIENT
  Sex: Male

DRUGS (6)
  1. SERETIDE [Suspect]
     Indication: CHRONIC OBSTRUCTIVE PULMONARY DISEASE
     Dosage: 500MCG PER DAY
     Route: 055
     Dates: start: 20100325, end: 20100524
  2. ELCITONIN [Concomitant]
     Dosage: 20IU PER DAY
     Route: 030
     Dates: end: 20100428
  3. THEO-DUR [Concomitant]
     Indication: CHRONIC OBSTRUCTIVE PULMONARY DISEASE
     Dosage: 200MG PER DAY
     Route: 048
     Dates: end: 20100524
  4. EVIPROSTAT [Concomitant]
     Dosage: 3IUAX PER DAY
     Route: 048
     Dates: end: 20100524
  5. UNKNOWN DRUG [Concomitant]
     Dosage: 8MG PER DAY
     Route: 048
     Dates: end: 20100524
  6. ALFAROL [Concomitant]
     Dosage: .5MCG PER DAY
     Route: 048
     Dates: start: 20100519

REACTIONS (1)
  - ACUTE MYOCARDIAL INFARCTION [None]
